FAERS Safety Report 9031250 (Version 1)
Quarter: 2013Q1

REPORT INFORMATION
  Report Type: Spontaneous
  Country: IT (occurrence: IT)
  Receive Date: 20130123
  Receipt Date: 20130123
  Transmission Date: 20140127
  Serious: Yes (Other)
  Sender: FDA-Public Use
  Company Number: IT-MYLANLABS-2013S1000741

PATIENT
  Age: 61 Year
  Sex: Male

DRUGS (3)
  1. OXALIPLATIN [Suspect]
     Indication: GASTRIC CANCER
     Dosage: 85MG/M2 EVERY 2 WEEKS
     Route: 065
  2. FLUOROURACIL [Suspect]
     Indication: GASTRIC CANCER
     Route: 050
  3. FOLINIC ACID [Suspect]
     Indication: GASTRIC CANCER
     Route: 065

REACTIONS (2)
  - Interstitial lung disease [Recovering/Resolving]
  - Diarrhoea [Unknown]
